FAERS Safety Report 9847283 (Version 1)
Quarter: 2014Q1

REPORT INFORMATION
  Report Type: Spontaneous
  Country: US (occurrence: US)
  Receive Date: 20140127
  Receipt Date: 20140127
  Transmission Date: 20141002
  Serious: Yes (Hospitalization)
  Sender: FDA-Public Use
  Company Number: US-DYAX CORP.-2013DX000148

PATIENT
  Age: 74 Year
  Sex: Female
  Weight: 54.48 kg

DRUGS (14)
  1. KALBITOR [Suspect]
     Indication: HEREDITARY ANGIOEDEMA
     Route: 058
     Dates: start: 201307, end: 201307
  2. KALBITOR [Suspect]
     Route: 058
  3. BERINERT [Concomitant]
     Indication: HEREDITARY ANGIOEDEMA
     Route: 042
     Dates: start: 20130731, end: 20130731
  4. CARVEDILOL [Concomitant]
     Indication: HYPERTENSION
     Route: 048
  5. ASPIRIN [Concomitant]
     Indication: TRANSIENT ISCHAEMIC ATTACK
     Route: 048
  6. DIAZEPAM [Concomitant]
     Indication: MUSCLE SPASMS
     Route: 048
  7. FOLIC ACID [Concomitant]
     Indication: TRANSIENT ISCHAEMIC ATTACK
     Route: 048
  8. GABAPENTIN [Concomitant]
     Indication: NEURALGIA
     Route: 048
  9. HYDROCHLOROTHIAZIDE [Concomitant]
     Indication: DIURETIC THERAPY
     Route: 048
  10. KLOR-CON [Concomitant]
     Indication: PRODUCT USED FOR UNKNOWN INDICATION
     Route: 048
  11. OMEPRAZOLE [Concomitant]
     Indication: HIATUS HERNIA
     Route: 048
  12. POLYETHYLENE GLYCOL [Concomitant]
     Indication: LAXATIVE SUPPORTIVE CARE
     Route: 048
  13. SIMVASTIN [Concomitant]
     Indication: PRODUCT USED FOR UNKNOWN INDICATION
     Route: 048
  14. ZOLPIDEM [Concomitant]
     Indication: SLEEP DISORDER
     Route: 048

REACTIONS (3)
  - Hereditary angioedema [Recovered/Resolved]
  - Blood potassium decreased [Unknown]
  - Off label use [Unknown]
